FAERS Safety Report 17549807 (Version 2)
Quarter: 2020Q1

REPORT INFORMATION
  Report Type: Spontaneous
  Country: US (occurrence: US)
  Receive Date: 20200317
  Receipt Date: 20200323
  Transmission Date: 20200409
  Serious: Yes (Hospitalization)
  Sender: FDA-Public Use
  Company Number: US-JNJFOC-20200312332

PATIENT
  Age: 77 Year
  Sex: Male
  Weight: 61.2 kg

DRUGS (5)
  1. TYVASO [Suspect]
     Active Substance: TREPROSTINIL
     Dosage: 36 UG (6 BREATHS), FOUR TIMES A DAY (QID)
  2. XARELTO [Suspect]
     Active Substance: RIVAROXABAN
     Indication: PRODUCT USED FOR UNKNOWN INDICATION
     Route: 048
  3. TYVASO [Suspect]
     Active Substance: TREPROSTINIL
     Indication: PULMONARY ARTERIAL HYPERTENSION
     Dosage: 18-54 UG,
     Dates: start: 20200124
  4. TYVASO [Suspect]
     Active Substance: TREPROSTINIL
     Dosage: 60-120 UG (10-20 BREATHS),
  5. TYVASO [Suspect]
     Active Substance: TREPROSTINIL
     Dosage: 54 UG (9 BREATHS),

REACTIONS (7)
  - Vomiting [Unknown]
  - Weight increased [Unknown]
  - Diarrhoea [Unknown]
  - Dyspnoea [Unknown]
  - Headache [Unknown]
  - Contusion [Unknown]
  - Dyspnoea exertional [Unknown]

NARRATIVE: CASE EVENT DATE: 2020
